FAERS Safety Report 24236004 (Version 1)
Quarter: 2024Q3

REPORT INFORMATION
  Report Type: Spontaneous
  Country: US (occurrence: US)
  Receive Date: 20240822
  Receipt Date: 20240822
  Transmission Date: 20241016
  Serious: Yes (Hospitalization)
  Sender: SANDOZ
  Company Number: US-SANDOZ-SDZ2024US073495

PATIENT
  Sex: Male

DRUGS (1)
  1. RIVASTIGMINE [Suspect]
     Active Substance: RIVASTIGMINE
     Indication: Product used for unknown indication
     Dosage: UNK UNK, QD 9.5MG/24H 30TTSM
     Route: 062

REACTIONS (3)
  - Application site pain [Unknown]
  - Application site vesicles [Unknown]
  - Application site pruritus [Not Recovered/Not Resolved]
